FAERS Safety Report 6425170-5 (Version None)
Quarter: 2009Q4

REPORT INFORMATION
  Report Type: 
  Country: None (occurrence: None)
  Receive Date: 20091102
  Receipt Date: 20091102
  Transmission Date: 20100525
  Serious: No
  Sender: FDA-Public Use
  Company Number: None

PATIENT
  Age: 64 Year
  Sex: Male
  Weight: 63 kg

DRUGS (1)
  1. BACITRACIN ZINC-POLYMYXIN B SULFATE [Suspect]
     Dates: start: 20080815, end: 20081113

REACTIONS (1)
  - RASH [None]
